FAERS Safety Report 6532018-7 (Version None)
Quarter: 2010Q1

REPORT INFORMATION
  Report Type: 
  Country: None (occurrence: None)
  Receive Date: 20100107
  Receipt Date: 20100107
  Transmission Date: 20100710
  Serious: Yes (Life-Threatening)
  Sender: FDA-Public Use
  Company Number: None

PATIENT
  Age: 47 Year
  Sex: Female
  Weight: 60.3284 kg

DRUGS (3)
  1. ZYFLO CR [Suspect]
     Indication: MULTIPLE ALLERGIES
     Dosage: 1 TABLET MORNING PO
     Route: 048
     Dates: start: 20090709, end: 20090801
  2. MAXAIR [Suspect]
     Indication: MULTIPLE ALLERGIES
     Dosage: 2 PUFFS PRN PO
     Route: 048
     Dates: start: 20090709, end: 20090801
  3. SINGULAIR [Concomitant]

REACTIONS (2)
  - CHEST DISCOMFORT [None]
  - MUSCLE SPASMS [None]
